FAERS Safety Report 9464790 (Version 2)
Quarter: 2013Q3

REPORT INFORMATION
  Report Type: Spontaneous
  Country: JP (occurrence: JP)
  Receive Date: 20130819
  Receipt Date: 20130904
  Transmission Date: 20140515
  Serious: Yes (Hospitalization)
  Sender: FDA-Public Use
  Company Number: JP-GLAXOSMITHKLINE-B0915880A

PATIENT
  Age: 54 Year
  Sex: Female

DRUGS (6)
  1. SULTANOL [Suspect]
     Indication: PRODUCT USED FOR UNKNOWN INDICATION
     Route: 055
  2. SEREVENT [Suspect]
     Indication: PRODUCT USED FOR UNKNOWN INDICATION
     Route: 055
  3. FLUTICASONE [Concomitant]
     Route: 055
  4. PREDNISOLONE [Concomitant]
     Route: 048
  5. AMINOPHYLLINE HYDRATE [Concomitant]
     Route: 042
  6. HYDROCORTISONE SODIUM SUCCINATE [Concomitant]
     Route: 042

REACTIONS (26)
  - Stress cardiomyopathy [Unknown]
  - Electrocardiogram ST segment elevation [Unknown]
  - Myocarditis [Unknown]
  - Left ventricular failure [Unknown]
  - Electrocardiogram T wave inversion [Unknown]
  - Electrocardiogram QT prolonged [Unknown]
  - Ventricular hypokinesia [Unknown]
  - Hypoxia [Recovering/Resolving]
  - Diffuse panbronchiolitis [Recovering/Resolving]
  - Altered state of consciousness [Unknown]
  - Hypoventilation [Unknown]
  - Pulmonary congestion [Unknown]
  - Sinus tachycardia [Unknown]
  - Bundle branch block right [Unknown]
  - Cyanosis [Unknown]
  - Rales [Unknown]
  - Rales [Unknown]
  - Heart sounds abnormal [Unknown]
  - Troponin T increased [Unknown]
  - Cardiomegaly [Unknown]
  - Jugular vein distension [Unknown]
  - Dyspnoea [Unknown]
  - Dyspnoea [Unknown]
  - White blood cell count increased [Unknown]
  - Hepatic function abnormal [Unknown]
  - Respiratory acidosis [Unknown]
